FAERS Safety Report 23439885 (Version 1)
Quarter: 2024Q1

REPORT INFORMATION
  Report Type: Spontaneous
  Country: TH (occurrence: TH)
  Receive Date: 20240124
  Receipt Date: 20240124
  Transmission Date: 20240410
  Serious: Yes (Death)
  Sender: FDA-Public Use
  Company Number: TH-PFIZER INC-PV202400009857

PATIENT
  Sex: Female

DRUGS (1)
  1. IBRANCE [Suspect]
     Active Substance: PALBOCICLIB
     Indication: Breast cancer
     Dosage: 125 MG 1 TAB EVERY 21 DAYS FOLLOWED BY 7 DAYS OF DRUG HOLIDAY
     Route: 048
     Dates: start: 20200323

REACTIONS (1)
  - Death [Fatal]
